FAERS Safety Report 12528258 (Version 2)
Quarter: 2016Q3

REPORT INFORMATION
  Report Type: Spontaneous
  Country: FR (occurrence: FR)
  Receive Date: 20160705
  Receipt Date: 20160810
  Transmission Date: 20161109
  Serious: Yes (Hospitalization)
  Sender: FDA-Public Use
  Company Number: FR-PFIZER INC-2016324107

PATIENT
  Age: 46 Year
  Sex: Male
  Weight: 55 kg

DRUGS (14)
  1. FLUOROURACILE ACCORD [Concomitant]
     Active Substance: FLUOROURACIL
     Indication: LIP AND/OR ORAL CAVITY CANCER
     Dosage: 1250 MG (750 MG/M2), FROM DAY 2 TO DAY 6
     Route: 042
     Dates: start: 20160531, end: 20160604
  2. PREDNISOLONE. [Concomitant]
     Active Substance: PREDNISOLONE
     Indication: PREMEDICATION
     Dosage: 80 MG, CYCLIC, FROM DAY 1 TO DAY 6
     Dates: start: 20160530, end: 20160604
  3. EMEND [Interacting]
     Active Substance: APREPITANT
     Indication: PROPHYLAXIS OF NAUSEA AND VOMITING
     Dosage: 125 MG, CYCLIC, ON DAY 1
     Route: 048
     Dates: start: 20160530, end: 20160530
  4. EMEND [Interacting]
     Active Substance: APREPITANT
     Dosage: 80 MG, CYCLIC, FROM DAY 2 TO DAY 6
     Route: 048
     Dates: start: 20160531, end: 20160604
  5. SKENAN [Concomitant]
     Active Substance: MORPHINE SULFATE
     Dosage: 10 MG, 2X/DAY
     Dates: start: 201605
  6. PRIMPERAN [Concomitant]
     Active Substance: METOCLOPRAMIDE HYDROCHLORIDE
     Dosage: UNK
     Dates: start: 20160601, end: 20160603
  7. LAROXYL [Concomitant]
     Active Substance: AMITRIPTYLINE
     Dosage: UNK
     Dates: start: 20160602, end: 20160602
  8. ONDANSETRON [Concomitant]
     Active Substance: ONDANSETRON
     Indication: PREMEDICATION
     Dosage: 8 MG, CYCLIC, TWICE DAILY FROM DAY 1 TO DAY 6
     Dates: start: 20160530, end: 20160604
  9. MACROGOL [Concomitant]
     Active Substance: POLYETHYLENE GLYCOLS
     Dosage: UNK
     Dates: start: 20160603, end: 20160604
  10. ESOMEPRAZOLE [Concomitant]
     Active Substance: ESOMEPRAZOLE
     Dosage: UNK
     Dates: start: 20160530, end: 20160530
  11. DOCETAXEL. [Suspect]
     Active Substance: DOCETAXEL
     Indication: LIP AND/OR ORAL CAVITY CANCER
     Dosage: 125 MG (75 MG/M2), CYCLIC AT DAY 1
     Route: 042
     Dates: start: 20160530, end: 20160530
  12. CISPLATINE ACCORD [Concomitant]
     Active Substance: CISPLATIN
     Indication: LIP AND/OR ORAL CAVITY CANCER
     Dosage: 125 MG (75 MG/M2), CYCLIC, AT DAY 1
     Route: 042
     Dates: start: 20160530, end: 20160530
  13. PARACETAMOL [Concomitant]
     Active Substance: ACETAMINOPHEN
     Dosage: 1 G
     Dates: start: 201605
  14. LOVENOX [Concomitant]
     Active Substance: ENOXAPARIN SODIUM
     Dosage: UNK
     Dates: start: 20160531, end: 20160531

REACTIONS (4)
  - Febrile neutropenia [Recovered/Resolved]
  - Thrombocytopenia [Recovered/Resolved]
  - Drug interaction [Recovered/Resolved]
  - Diarrhoea [Recovered/Resolved]

NARRATIVE: CASE EVENT DATE: 20160530
